FAERS Safety Report 4883037-8 (Version None)
Quarter: 2006Q1

REPORT INFORMATION
  Report Type: 
  Country: None (occurrence: None)
  Receive Date: 20060113
  Receipt Date: 20051229
  Transmission Date: 20060701
  Serious: Yes (Hospitalization)
  Sender: FDA-Public Use
  Company Number: FR 041205411

PATIENT
  Age: 75 Year
  Sex: Female

DRUGS (12)
  1. FORTEO [Suspect]
     Indication: OSTEOPOROSIS
     Dosage: 20 UG, DAILY (1/D), SUBCUTANEOUS
     Route: 058
     Dates: start: 20041101
  2. FORTEO PEN (FORTEO PEN) PEN, DISPOSABLE [Concomitant]
  3. CORTANCYL (PREDNISONE) [Concomitant]
  4. DEBRIDAT (TRIMEBUTINE MALETATE) CAPSULE [Concomitant]
  5. BEDELIX (MONTMORILONITE) [Concomitant]
  6. ACETAMINOPHEN [Concomitant]
  7. TEMESTA (LORAZEPAM) [Concomitant]
  8. SOTALOL HCL [Concomitant]
  9. ELISOR (PRAVASTATIN SODIUM) CAPSULE [Suspect]
  10. COZAAR (LOSARTAN POTASSIUM) CAPSULE [Concomitant]
  11. CALCIDOSE (CALCIUM CARBONATE) DAPSULE [Concomitant]
  12. ESOMEPRAZOLE (ESOMEPRAZOLE) [Concomitant]

REACTIONS (8)
  - ABDOMINAL PAIN [None]
  - ANXIETY [None]
  - DYSPNOEA [None]
  - FLATULENCE [None]
  - LUNG DISORDER [None]
  - PAIN IN EXTREMITY [None]
  - PALPITATIONS [None]
  - TACHYCARDIA [None]
